FAERS Safety Report 5101433-0 (Version None)
Quarter: 2006Q3

REPORT INFORMATION
  Report Type: 
  Country: None (occurrence: None)
  Receive Date: 20060911
  Receipt Date: 20060908
  Transmission Date: 20061208
  Serious: Yes (Hospitalization)
  Sender: FDA-Public Use
  Company Number: FR-GLAXOSMITHKLINE-B0437354A

PATIENT
  Age: 10 Year
  Sex: Female

DRUGS (5)
  1. CLAMOXYL [Suspect]
     Indication: BACTERIAL INFECTION
     Route: 048
     Dates: start: 20060213
  2. COLLU HEXTRIL [Suspect]
     Indication: BACTERIAL INFECTION
     Route: 048
     Dates: start: 20060213
  3. URBANYL [Suspect]
     Dosage: 10MG PER DAY
     Route: 048
     Dates: start: 20040414
  4. VALPROATE SODIUM + VALPROIC ACID [Suspect]
     Dosage: 800MG PER DAY
     Route: 048
     Dates: start: 20040202, end: 20060219
  5. PARACETAMOL [Concomitant]
     Route: 065
     Dates: start: 20060201

REACTIONS (6)
  - ANAEMIA [None]
  - ASTHENIA [None]
  - LEUKOPENIA [None]
  - PANCYTOPENIA [None]
  - PHARYNGOTONSILLITIS [None]
  - THROMBOCYTOPENIA [None]
